FAERS Safety Report 24105057 (Version 1)
Quarter: 2024Q3

REPORT INFORMATION
  Report Type: Spontaneous
  Country: US (occurrence: None)
  Receive Date: 20240717
  Receipt Date: 20240717
  Transmission Date: 20241017
  Serious: Yes (Hospitalization)
  Sender: Public
  Company Number: None

PATIENT
  Sex: Female

DRUGS (4)
  1. TADALAFIL [Suspect]
     Active Substance: TADALAFIL
     Indication: Pulmonary arterial hypertension
     Dosage: FREQUENCY : DAILY;?
     Route: 048
     Dates: start: 202109
  2. GAMUNEX-C 10% SDV(10GM/100ML) [Concomitant]
  3. OPSUMIT [Concomitant]
  4. REMODULIN [Concomitant]
     Active Substance: TREPROSTINIL

REACTIONS (1)
  - Therapeutic procedure [None]
